FAERS Safety Report 8201123-1 (Version None)
Quarter: 2012Q1

REPORT INFORMATION
  Report Type: 
  Country: None (occurrence: None)
  Receive Date: 20120312
  Receipt Date: 20120228
  Transmission Date: 20120608
  Serious: Yes (Hospitalization)
  Sender: FDA-Public Use
  Company Number: JP-JNJFOC-20120302340

PATIENT
  Age: 79 Year
  Sex: Male

DRUGS (2)
  1. RISPERDAL [Suspect]
     Indication: DEMENTIA
     Route: 048
  2. RISPERIDONE [Suspect]
     Indication: DEMENTIA
     Route: 048

REACTIONS (3)
  - POISONING [None]
  - BLOOD FIBRINOGEN DECREASED [None]
  - LOSS OF CONSCIOUSNESS [None]
